FAERS Safety Report 5707857-2 (Version None)
Quarter: 2008Q2

REPORT INFORMATION
  Report Type: 
  Country: None (occurrence: None)
  Receive Date: 20080417
  Receipt Date: 20080414
  Transmission Date: 20081010
  Serious: Yes (Hospitalization)
  Sender: FDA-Public Use
  Company Number: FR-WYE-G01358408

PATIENT
  Sex: Male

DRUGS (2)
  1. TAZOCILLINE [Suspect]
     Indication: PSEUDOMONAL BACTERAEMIA
     Route: 042
     Dates: start: 20080112, end: 20080116
  2. GENTAMICIN SULFATE [Concomitant]
     Indication: PSEUDOMONAL BACTERAEMIA
     Dosage: UNKNOWN
     Route: 065
     Dates: start: 20080112

REACTIONS (1)
  - ERYTHEMA [None]
